FAERS Safety Report 5769189-6 (Version None)
Quarter: 2008Q2

REPORT INFORMATION
  Report Type: 
  Country: None (occurrence: None)
  Receive Date: 20080612
  Receipt Date: 20080321
  Transmission Date: 20081010
  Serious: No
  Sender: FDA-Public Use
  Company Number: US-ABBOTT-08P-163-0444044-00

PATIENT
  Sex: Female
  Weight: 93.978 kg

DRUGS (1)
  1. HUMIRA [Suspect]
     Indication: RHEUMATOID ARTHRITIS
     Route: 058

REACTIONS (10)
  - ABDOMINAL PAIN UPPER [None]
  - ARTHRALGIA [None]
  - ASTHENIA [None]
  - COUGH [None]
  - HEADACHE [None]
  - NASOPHARYNGITIS [None]
  - PAIN [None]
  - RASH [None]
  - SCAB [None]
  - SUNBURN [None]
